FAERS Safety Report 10654881 (Version 1)
Quarter: 2014Q4

REPORT INFORMATION
  Report Type: Spontaneous
  Country: US (occurrence: US)
  Receive Date: 20141216
  Receipt Date: 20141216
  Transmission Date: 20150529
  Serious: No
  Sender: FDA-Public Use
  Company Number: US-BAYER-2014-183064

PATIENT
  Age: 58 Year
  Sex: Female

DRUGS (3)
  1. ISONIAZID. [Concomitant]
     Active Substance: ISONIAZID
     Indication: TUBERCULOUS TENOSYNOVITIS
     Dosage: UNK
  2. MOXIFLOXACIN ORAL [Suspect]
     Active Substance: MOXIFLOXACIN
     Indication: TUBERCULOUS TENOSYNOVITIS
     Dosage: UNK
  3. AZITHROMYCIN [Suspect]
     Active Substance: AZITHROMYCIN ANHYDROUS
     Indication: TUBERCULOUS TENOSYNOVITIS
     Dosage: UNK

REACTIONS (2)
  - Tinnitus [None]
  - Product use issue [None]
